FAERS Safety Report 6071796-0 (Version None)
Quarter: 2009Q1

REPORT INFORMATION
  Report Type: 
  Country: None (occurrence: None)
  Receive Date: 20090210
  Receipt Date: 20090130
  Transmission Date: 20090719
  Serious: Yes (Other)
  Sender: FDA-Public Use
  Company Number: PHHY2009ES03448

PATIENT
  Age: 67 Year
  Sex: Male

DRUGS (4)
  1. VOLTAREN [Suspect]
     Indication: RHEUMATOID ARTHRITIS
     Dosage: 100 MG DAILY
     Route: 048
  2. METHOTREXATE [Interacting]
     Indication: PSORIATIC ARTHROPATHY
     Dosage: 7.5 MG
     Route: 048
  3. LISINOPRIL [Interacting]
     Indication: HYPERTENSION
     Dosage: 20 MG DAILY
     Route: 048
  4. ETANERCEPT [Interacting]
     Indication: PSORIATIC ARTHROPATHY
     Dosage: 50 MG WEEKLY
     Route: 058
     Dates: start: 20040101

REACTIONS (3)
  - DRUG INTERACTION [None]
  - GENERAL PHYSICAL HEALTH DETERIORATION [None]
  - LUNG NEOPLASM MALIGNANT [None]
